FAERS Safety Report 5956285-3 (Version None)
Quarter: 2008Q4

REPORT INFORMATION
  Report Type: 
  Country: None (occurrence: None)
  Receive Date: 20081112
  Receipt Date: 20081029
  Transmission Date: 20090506
  Serious: Yes (Other)
  Sender: FDA-Public Use
  Company Number: 4610

PATIENT
  Age: 80 Year
  Sex: Female

DRUGS (2)
  1. TARSUM SHAMPOO/GEL [Suspect]
     Indication: PSORIASIS
     Dosage: APPLICATION-QD-TOPICAL
     Route: 061
     Dates: start: 20080901
  2. CLOBETASOL (OLUX FOAM) [Suspect]
     Dosage: TOPICAL
     Route: 061
     Dates: start: 20080901

REACTIONS (5)
  - DENTAL DISCOMFORT [None]
  - DISCOMFORT [None]
  - DYSKINESIA [None]
  - MASTICATION DISORDER [None]
  - TOOTH DISORDER [None]
